FAERS Safety Report 7059612-1 (Version None)
Quarter: 2010Q4

REPORT INFORMATION
  Report Type: 
  Country: None (occurrence: None)
  Receive Date: 20101025
  Receipt Date: 20101018
  Transmission Date: 20110411
  Serious: Yes (Other)
  Sender: FDA-Public Use
  Company Number: BR-WYE-H18204110

PATIENT
  Age: 19 Year
  Sex: Male

DRUGS (3)
  1. SIROLIMUS [Suspect]
     Indication: PROPHYLAXIS AGAINST TRANSPLANT REJECTION
  2. RITUXIMAB [Concomitant]
     Dosage: UNKNOWN
  3. PREDNISONE [Concomitant]

REACTIONS (3)
  - FOCAL SEGMENTAL GLOMERULOSCLEROSIS [None]
  - NEPHROPATHY TOXIC [None]
  - THROMBOTIC MICROANGIOPATHY [None]
